FAERS Safety Report 17697440 (Version 1)
Quarter: 2020Q2

REPORT INFORMATION
  Report Type: Spontaneous
  Country: US (occurrence: US)
  Receive Date: 20200422
  Receipt Date: 20200422
  Transmission Date: 20200714
  Serious: Yes (Disabling)
  Sender: FDA-Public Use
  Company Number: None

PATIENT
  Age: 77 Year
  Sex: Female
  Weight: 114.3 kg

DRUGS (1)
  1. RANITIDINE 150MG TABLET [Suspect]
     Active Substance: RANITIDINE
     Indication: GASTROOESOPHAGEAL REFLUX DISEASE
     Dosage: ?          QUANTITY:1 TABLET(S);?
     Route: 048
     Dates: start: 19981014, end: 20200413

REACTIONS (2)
  - Product colour issue [None]
  - Diarrhoea [None]

NARRATIVE: CASE EVENT DATE: 20191101
